FAERS Safety Report 4932169-4 (Version None)
Quarter: 2006Q1

REPORT INFORMATION
  Report Type: 
  Country: None (occurrence: None)
  Receive Date: 20060228
  Receipt Date: 20060206
  Transmission Date: 20060701
  Serious: No
  Sender: FDA-Public Use
  Company Number: US200512000105

PATIENT
  Age: 50 Year
  Sex: Female
  Weight: 99.8 kg

DRUGS (14)
  1. ZYPREXA [Suspect]
     Indication: SCHIZOPHRENIA, PARANOID TYPE
     Dosage: SEE IMAGE, ORAL
     Route: 048
     Dates: start: 19990901, end: 20000920
  2. ZYPREXA [Suspect]
     Indication: SCHIZOPHRENIA, PARANOID TYPE
     Dosage: SEE IMAGE, ORAL
     Route: 048
     Dates: start: 20000920, end: 20030602
  3. ZYPREXA [Suspect]
     Indication: SCHIZOPHRENIA, PARANOID TYPE
     Dosage: SEE IMAGE, ORAL
     Route: 048
     Dates: start: 20030602, end: 20031010
  4. ZYPREXA [Suspect]
     Indication: SCHIZOPHRENIA, PARANOID TYPE
     Dosage: SEE IMAGE, ORAL
     Route: 048
     Dates: start: 20040527, end: 20041020
  5. ZYPREXA [Suspect]
     Indication: SCHIZOPHRENIA, PARANOID TYPE
     Dosage: SEE IMAGE, ORAL
     Route: 048
     Dates: start: 20041020, end: 20050607
  6. ZYPREXA [Suspect]
     Indication: SCHIZOPHRENIA, PARANOID TYPE
     Dosage: SEE IMAGE, ORAL
     Route: 048
     Dates: start: 20050607, end: 20050630
  7. PROZAC [Concomitant]
  8. TRAZODONE HCL [Concomitant]
  9. DEPAKOTE [Concomitant]
  10. LEVOXYL [Concomitant]
  11. DIOVAN [Concomitant]
  12. VITAMIN E [Concomitant]
  13. CALCIUM CARBONATE (CALCIUM CARBONATE) TABLET [Concomitant]
  14. ABILIFY [Concomitant]

REACTIONS (4)
  - DIABETES MELLITUS NON-INSULIN-DEPENDENT [None]
  - IRON DEFICIENCY ANAEMIA [None]
  - METRORRHAGIA [None]
  - WEIGHT INCREASED [None]
